FAERS Safety Report 9398362 (Version 1)
Quarter: 2013Q3

REPORT INFORMATION
  Report Type: Report from Study
  Country: JP (occurrence: JP)
  Receive Date: 20130712
  Receipt Date: 20130712
  Transmission Date: 20140515
  Serious: Yes (Other)
  Sender: FDA-Public Use
  Company Number: JP-GILEAD-2013-0078948

PATIENT
  Age: 85 Year
  Sex: Female

DRUGS (2)
  1. AMBRISENTAN [Suspect]
     Indication: PULMONARY ARTERIAL HYPERTENSION
     Dosage: 5 MG, BID
     Route: 048
     Dates: start: 20111214
  2. BERASUS [Concomitant]
     Indication: DIARRHOEA
     Route: 048
     Dates: start: 20110809, end: 20120105

REACTIONS (2)
  - Pericardial effusion [Recovered/Resolved]
  - Face oedema [Recovered/Resolved]
